FAERS Safety Report 15523019 (Version 1)
Quarter: 2018Q4

REPORT INFORMATION
  Report Type: Spontaneous
  Country: US (occurrence: US)
  Receive Date: 20181019
  Receipt Date: 20181019
  Transmission Date: 20190205
  Serious: Yes (Death)
  Sender: FDA-Public Use
  Company Number: None

PATIENT
  Sex: Male

DRUGS (16)
  1. IMATINIB MES [Suspect]
     Active Substance: IMATINIB MESYLATE
     Indication: CHRONIC MYELOID LEUKAEMIA
     Route: 048
     Dates: start: 20180821
  2. BACLOFEN. [Concomitant]
     Active Substance: BACLOFEN
  3. POT CHLORIDE [Concomitant]
     Active Substance: POTASSIUM CHLORIDE
  4. TRICOR [Concomitant]
     Active Substance: FENOFIBRATE
  5. ASPIRIN. [Concomitant]
     Active Substance: ASPIRIN
  6. MAG OXIDE [Concomitant]
     Active Substance: MAGNESIUM OXIDE
  7. NEURONTIN [Concomitant]
     Active Substance: GABAPENTIN
  8. CREON [Concomitant]
     Active Substance: PANCRELIPASE AMYLASE\PANCRELIPASE LIPASE\PANCRELIPASE PROTEASE
  9. DULCOLAX NOS [Concomitant]
     Active Substance: BISACODYL OR DOCUSATE SODIUM
  10. LASIX [Concomitant]
     Active Substance: FUROSEMIDE
  11. MS CONTIN [Concomitant]
     Active Substance: MORPHINE SULFATE
  12. PROCHLORPER [Concomitant]
  13. MIDODRINE [Concomitant]
     Active Substance: MIDODRINE
  14. NICODERM CQ [Concomitant]
     Active Substance: NICOTINE
  15. PLAVIX [Concomitant]
     Active Substance: CLOPIDOGREL BISULFATE
  16. LASIX [Concomitant]
     Active Substance: FUROSEMIDE

REACTIONS (1)
  - Death [None]
